FAERS Safety Report 4980232-4 (Version None)
Quarter: 2006Q2

REPORT INFORMATION
  Report Type: 
  Country: None (occurrence: None)
  Receive Date: 20060424
  Receipt Date: 20060413
  Transmission Date: 20061013
  Serious: Yes (Hospitalization)
  Sender: FDA-Public Use
  Company Number: US-JNJFOC-20060403587

PATIENT
  Sex: Male
  Weight: 109.77 kg

DRUGS (2)
  1. DURAGESIC-100 [Suspect]
     Route: 062
  2. DURAGESIC-100 [Suspect]
     Indication: CANCER PAIN
     Route: 062

REACTIONS (4)
  - HEPATIC FUNCTION ABNORMAL [None]
  - MYOCARDIAL INFARCTION [None]
  - RENAL IMPAIRMENT [None]
  - RESPIRATORY RATE DECREASED [None]
